FAERS Safety Report 4572667-9 (Version None)
Quarter: 2005Q1

REPORT INFORMATION
  Report Type: 
  Country: None (occurrence: None)
  Receive Date: 20050208
  Receipt Date: 20041116
  Transmission Date: 20050727
  Serious: No
  Sender: FDA-Public Use
  Company Number: US-GLAXOSMITHKLINE-A0534135A

PATIENT
  Age: 69 Year
  Sex: Female

DRUGS (3)
  1. PAXIL CR [Suspect]
     Indication: IRRITABLE BOWEL SYNDROME
     Dosage: 20MG PER DAY
     Route: 048
     Dates: start: 20041115
  2. DIPHENOXYLATE [Concomitant]
  3. UNSPECIFIED MEDICATIONS [Concomitant]

REACTIONS (1)
  - DRUG INEFFECTIVE [None]
